FAERS Safety Report 7198436-1 (Version None)
Quarter: 2010Q4

REPORT INFORMATION
  Report Type: 
  Country: None (occurrence: None)
  Receive Date: 20101227
  Receipt Date: 20101215
  Transmission Date: 20110411
  Serious: Yes (Hospitalization)
  Sender: FDA-Public Use
  Company Number: PHHY2010US85502

PATIENT
  Sex: Male
  Weight: 106 kg

DRUGS (1)
  1. ERL 080A [Suspect]
     Indication: RENAL TRANSPLANT
     Dosage: 720 MG, BID
     Route: 048
     Dates: start: 20071116

REACTIONS (4)
  - CHEST PAIN [None]
  - KIDNEY TRANSPLANT REJECTION [None]
  - MYOCARDIAL INFARCTION [None]
  - TROPONIN INCREASED [None]
